FAERS Safety Report 11277285 (Version 1)
Quarter: 2015Q3

REPORT INFORMATION
  Report Type: Spontaneous
  Country: AU (occurrence: AU)
  Receive Date: 20150716
  Receipt Date: 20150716
  Transmission Date: 20151125
  Serious: Yes (Death)
  Sender: FDA-Public Use
  Company Number: AU-BAXTER-2012BAX006346

PATIENT
  Sex: Male

DRUGS (3)
  1. SYNTHAMIN [Suspect]
     Active Substance: AMINO ACIDS
     Indication: PARENTERAL NUTRITION
     Route: 065
  2. CLINOLEIC 20% SOY OIL AND OLIVE OIL EMULSION FOR INJECTION BAG [Suspect]
     Active Substance: OLIVE OIL\SOYBEAN OIL
     Indication: PARENTERAL NUTRITION
     Route: 065
  3. BAXTER 25% GLUCOSE 250MG_1L INJECTION BP BAG AHB0224 [Suspect]
     Active Substance: DEXTROSE
     Indication: PARENTERAL NUTRITION
     Route: 065

REACTIONS (1)
  - Death [Fatal]

NARRATIVE: CASE EVENT DATE: 20120519
